FAERS Safety Report 5723758-8 (Version None)
Quarter: 2008Q2

REPORT INFORMATION
  Report Type: 
  Country: None (occurrence: None)
  Receive Date: 20080430
  Receipt Date: 20080418
  Transmission Date: 20081010
  Serious: Yes (Hospitalization)
  Sender: FDA-Public Use
  Company Number: US-JNJFOC-20080405871

PATIENT
  Sex: Male
  Weight: 81.65 kg

DRUGS (7)
  1. FENTANYL TRANSDERMAL SYSTEM [Suspect]
     Dosage: 2X 100 UG/HR PATCHES AND 1X 50 UG/HR PATCH
     Route: 062
  2. FENTANYL TRANSDERMAL SYSTEM [Suspect]
     Dosage: 5X 100UG/HR PATCHES
     Route: 062
  3. FENTANYL TRANSDERMAL SYSTEM [Suspect]
     Dosage: 2X 100UG/HR PATCHES AND 1X 25UG/HR PATCH
     Route: 062
  4. FENTANYL TRANSDERMAL SYSTEM [Suspect]
     Indication: HERPES ZOSTER
     Dosage: 2X 100 UG/HR PATCHES
     Route: 062
  5. FENTANYL TRANSDERMAL SYSTEM [Suspect]
     Indication: PANCREATITIS
     Dosage: 1X 50 UG/HR AND 1X 100 UG/HR PATCHES
     Route: 062
  6. FENTANYL TRANSDERMAL SYSTEM [Suspect]
     Indication: PANCREATITIS
     Route: 062
  7. DURAGESIC-100 [Suspect]
     Indication: DRUG USE FOR UNKNOWN INDICATION
     Route: 062

REACTIONS (7)
  - DRUG EFFECT DECREASED [None]
  - INCORRECT DRUG ADMINISTRATION DURATION [None]
  - PANCREATITIS [None]
  - SINUSITIS [None]
  - TREATMENT NONCOMPLIANCE [None]
  - WEIGHT DECREASED [None]
  - WITHDRAWAL SYNDROME [None]
